FAERS Safety Report 6636308-9 (Version None)
Quarter: 2010Q1

REPORT INFORMATION
  Report Type: 
  Country: None (occurrence: None)
  Receive Date: 20100316
  Receipt Date: 20100306
  Transmission Date: 20100710
  Serious: Yes (Other)
  Sender: FDA-Public Use
  Company Number: US-ROCHE-689705

PATIENT
  Age: 50 Year
  Sex: Female

DRUGS (3)
  1. HERCEPTIN [Suspect]
     Indication: BREAST CANCER
     Dosage: 5 CYCLES.
     Route: 041
  2. TAXOTERE [Suspect]
     Indication: BREAST CANCER
     Dosage: 5 CYCLES.
     Route: 041
  3. CARBOPLATIN [Suspect]
     Indication: BREAST CANCER
     Dosage: 5 CYCLES.
     Route: 041

REACTIONS (3)
  - BLISTER [None]
  - ERYTHEMA [None]
  - SKIN TOXICITY [None]
